FAERS Safety Report 10773205 (Version 1)
Quarter: 2015Q1

REPORT INFORMATION
  Report Type: Other
  Country: US (occurrence: US)
  Receive Date: 20150208
  Receipt Date: 20150208
  Transmission Date: 20150721
  Serious: No
  Sender: FDA-Public Use
  Company Number: US-ACORDA-ACO_106800_2014

PATIENT
  Age: 69 Year
  Sex: Female
  Weight: 57.14 kg

DRUGS (2)
  1. LOVASTATIN. [Concomitant]
     Active Substance: LOVASTATIN
     Indication: PRODUCT USED FOR UNKNOWN INDICATION
     Dosage: 20 MG, UNK
     Dates: start: 2009
  2. AMPYRA [Suspect]
     Active Substance: DALFAMPRIDINE
     Indication: GAIT DISTURBANCE
     Dosage: 10 MG, BID
     Route: 048
     Dates: start: 2011

REACTIONS (5)
  - Wound haemorrhage [Recovered/Resolved]
  - Pain [Recovering/Resolving]
  - Epistaxis [Recovered/Resolved]
  - Fall [Unknown]
  - Lip swelling [Recovering/Resolving]

NARRATIVE: CASE EVENT DATE: 20141028
